FAERS Safety Report 18079772 (Version 8)
Quarter: 2022Q4

REPORT INFORMATION
  Report Type: Spontaneous
  Country: CA (occurrence: CA)
  Receive Date: 20200728
  Receipt Date: 20221221
  Transmission Date: 20230112
  Serious: Yes (Other)
  Sender: FDA-Public Use
  Company Number: CA-PFIZER INC-2020261299

PATIENT
  Age: 62 Year
  Sex: Female
  Weight: 128 kg

DRUGS (6)
  1. DILANTIN [Suspect]
     Active Substance: PHENYTOIN
     Indication: Epilepsy
     Dosage: 100 MILLIGRAM, TID (100 MG, 3X/DAY)
     Route: 065
  2. DILANTIN [Suspect]
     Active Substance: PHENYTOIN
     Indication: Brain neoplasm
     Dosage: 30 MG
     Route: 065
  3. DILANTIN [Suspect]
     Active Substance: PHENYTOIN
     Indication: Seizure
     Dosage: 380 MILLIGRAM, QD (380 MG, DAILY)
     Route: 048
  4. DILANTIN [Suspect]
     Active Substance: PHENYTOIN
     Dosage: 100 MILLIGRAM, TID (100 MG TID)
     Route: 065
  5. DILANTIN [Suspect]
     Active Substance: PHENYTOIN
     Dosage: 30 MILLIGRAM, BID (30 MG BID)
     Route: 065
  6. PRIMIDONE [Concomitant]
     Active Substance: PRIMIDONE
     Indication: Epilepsy
     Dosage: UNK (750)
     Route: 065

REACTIONS (40)
  - Seizure [Not Recovered/Not Resolved]
  - Weight decreased [Not Recovered/Not Resolved]
  - Cardiac flutter [Not Recovered/Not Resolved]
  - Noninfective encephalitis [Unknown]
  - Aortic stenosis [Not Recovered/Not Resolved]
  - Brain oedema [Not Recovered/Not Resolved]
  - Suicidal ideation [Unknown]
  - Drug level decreased [Unknown]
  - Drug ineffective [Unknown]
  - Flushing [Not Recovered/Not Resolved]
  - Photosensitivity reaction [Unknown]
  - Cardiac disorder [Not Recovered/Not Resolved]
  - Toxicity to various agents [Unknown]
  - Dysstasia [Unknown]
  - Gastrointestinal disorder [Not Recovered/Not Resolved]
  - Coagulopathy [Unknown]
  - Blood glucose decreased [Unknown]
  - Mood swings [Not Recovered/Not Resolved]
  - Gastroenteritis [Not Recovered/Not Resolved]
  - Faeces discoloured [Unknown]
  - Depressed mood [Not Recovered/Not Resolved]
  - Tinnitus [Not Recovered/Not Resolved]
  - Swelling [Unknown]
  - Tachycardia [Not Recovered/Not Resolved]
  - Heart valve incompetence [Not Recovered/Not Resolved]
  - Hepatic enzyme abnormal [Not Recovered/Not Resolved]
  - Thyroid disorder [Not Recovered/Not Resolved]
  - Alopecia [Not Recovered/Not Resolved]
  - Fatigue [Not Recovered/Not Resolved]
  - Oedema [Not Recovered/Not Resolved]
  - Iron deficiency [Not Recovered/Not Resolved]
  - Blood folate decreased [Not Recovered/Not Resolved]
  - Blood sodium increased [Not Recovered/Not Resolved]
  - Product formulation issue [Unknown]
  - Dizziness [Unknown]
  - Swelling face [Not Recovered/Not Resolved]
  - Pyrexia [Unknown]
  - Nausea [Not Recovered/Not Resolved]
  - Somnolence [Unknown]
  - Drug hypersensitivity [Unknown]

NARRATIVE: CASE EVENT DATE: 20200714
